FAERS Safety Report 5116353-5 (Version None)
Quarter: 2006Q3

REPORT INFORMATION
  Report Type: 
  Country: None (occurrence: None)
  Receive Date: 20060928
  Receipt Date: 20060921
  Transmission Date: 20061208
  Serious: Yes (Disabling, Other)
  Sender: FDA-Public Use
  Company Number: GB-SP-2006-02486

PATIENT
  Age: 40 Year
  Sex: Female

DRUGS (1)
  1. IMMUCYST [Suspect]
     Indication: BLADDER CANCER
     Route: 043
     Dates: start: 19990101

REACTIONS (6)
  - BLOOD URINE PRESENT [None]
  - CYSTITIS [None]
  - HYPERTONIC BLADDER [None]
  - LIVER DISORDER [None]
  - RENAL IMPAIRMENT [None]
  - RHEUMATOID ARTHRITIS [None]
